FAERS Safety Report 5745809-7 (Version None)
Quarter: 2008Q2

REPORT INFORMATION
  Report Type: 
  Country: None (occurrence: None)
  Receive Date: 20080521
  Receipt Date: 20080512
  Transmission Date: 20081010
  Serious: Yes (Other)
  Sender: FDA-Public Use
  Company Number: NL-ABBOTT-08P-114-0452258-00

PATIENT
  Sex: Female
  Weight: 90 kg

DRUGS (1)
  1. HUMIRA [Suspect]
     Indication: CROHN'S DISEASE
     Dosage: 4 TIMES 40MG START UP; 2 TIMES 40MG AFTER 2 WEEKS; 40MG EOW
     Route: 058
     Dates: start: 20071115, end: 20080210

REACTIONS (2)
  - DEPRESSION [None]
  - SUICIDE ATTEMPT [None]
